FAERS Safety Report 20015735 (Version 1)
Quarter: 2021Q4

REPORT INFORMATION
  Report Type: Spontaneous
  Country: US (occurrence: None)
  Receive Date: 20211030
  Receipt Date: 20211030
  Transmission Date: 20220303
  Serious: Yes (Hospitalization)
  Sender: FDA-Public Use
  Company Number: None

PATIENT
  Age: 42 Year
  Sex: Male
  Weight: 85 kg

DRUGS (4)
  1. CISPLATIN [Suspect]
     Active Substance: CISPLATIN
     Dates: end: 20210923
  2. FILGRASTIM [Suspect]
     Active Substance: FILGRASTIM
     Dates: end: 20210927
  3. IFOSFAMIDE [Suspect]
     Active Substance: IFOSFAMIDE
     Dates: end: 20210923
  4. TAXOL [Suspect]
     Active Substance: PACLITAXEL
     Dates: end: 20210922

REACTIONS (1)
  - Adverse event [None]

NARRATIVE: CASE EVENT DATE: 20211005
